FAERS Safety Report 24453308 (Version 2)
Quarter: 2024Q4

REPORT INFORMATION
  Report Type: Report from Study
  Country: US (occurrence: US)
  Receive Date: 20241017
  Receipt Date: 20241018
  Transmission Date: 20250114
  Serious: No
  Sender: ROCHE
  Company Number: US-ROCHE-3062136

PATIENT
  Age: 57 Year
  Sex: Female
  Weight: 90.72 kg

DRUGS (3)
  1. RITUXAN [Suspect]
     Active Substance: RITUXIMAB
     Indication: Multiple sclerosis
     Route: 042
     Dates: start: 20191021
  2. RITUXAN [Suspect]
     Active Substance: RITUXIMAB
     Route: 042
     Dates: start: 20191021
  3. DOTAREM [Concomitant]
     Active Substance: GADOTERATE MEGLUMINE

REACTIONS (2)
  - Off label use [Unknown]
  - No adverse event [Unknown]
